FAERS Safety Report 6660636-4 (Version None)
Quarter: 2010Q1

REPORT INFORMATION
  Report Type: 
  Country: None (occurrence: None)
  Receive Date: 20100331
  Receipt Date: 20100317
  Transmission Date: 20100710
  Serious: Yes (Hospitalization, Other)
  Sender: FDA-Public Use
  Company Number: ES-ELI_LILLY_AND_COMPANY-ES201003004647

PATIENT
  Sex: Female
  Weight: 84 kg

DRUGS (9)
  1. FORTEO [Suspect]
     Indication: SPINAL FRACTURE
     Dosage: 20 UG, DAILY (1/D)
     Route: 058
     Dates: start: 20081107, end: 20100126
  2. ENOXAPARIN SODIUM [Concomitant]
     Dosage: UNK, UNKNOWN
     Route: 065
  3. SINTROM [Concomitant]
     Dosage: UNK, UNKNOWN
     Route: 065
  4. MASDIL [Concomitant]
     Dosage: 120 MG, UNKNOWN
     Route: 065
  5. DIGOXIN [Concomitant]
     Dosage: UNK, UNKNOWN
     Route: 065
  6. PANTOPRAZOL [Concomitant]
     Dosage: UNK, UNKNOWN
     Route: 065
  7. SEGURIL [Concomitant]
     Dosage: UNK, UNKNOWN
     Route: 065
  8. CARDIL                             /00489702/ [Concomitant]
     Dosage: UNK, UNKNOWN
     Route: 065
  9. HIDROFEROL [Concomitant]
     Dosage: UNK, UNKNOWN
     Route: 065

REACTIONS (4)
  - ARRHYTHMIA [None]
  - CARDIOMEGALY [None]
  - HYPERCHOLESTEROLAEMIA [None]
  - HYPERTENSION [None]
